FAERS Safety Report 24200683 (Version 3)
Quarter: 2024Q4

REPORT INFORMATION
  Report Type: Spontaneous
  Country: JP (occurrence: JP)
  Receive Date: 20240812
  Receipt Date: 20241013
  Transmission Date: 20250115
  Serious: Yes (Hospitalization, Other)
  Sender: ARDELYX
  Company Number: JP-ARDELYX-2024ARDX006063

PATIENT
  Age: 76 Year
  Sex: Male

DRUGS (5)
  1. TENAPANOR HYDROCHLORIDE [Suspect]
     Active Substance: TENAPANOR HYDROCHLORIDE
     Indication: Hyperphosphataemia
     Dosage: 5 MILLIGRAM/DAY
     Route: 048
     Dates: start: 20240727, end: 20240730
  2. ASPIRIN [Suspect]
     Active Substance: ASPIRIN
     Indication: Product used for unknown indication
     Dosage: 100 MILLIGRAM, (IMMEDIATELY AFTER THE FIRST MELAENA)
     Route: 048
     Dates: end: 20240727
  3. FOSRENOL [Concomitant]
     Active Substance: LANTHANUM CARBONATE
     Indication: Product used for unknown indication
     Dosage: UNK, TAKEN CONTINUOUSLY FOR QUITE SOME TIME
     Route: 065
  4. CALTAN [Concomitant]
     Active Substance: CALCIUM CARBONATE
     Indication: Product used for unknown indication
     Dosage: UNK, TAKEN CONTINUOUSLY FOR QUITE SOME TIME
     Route: 065
  5. CALCIUM POLYSTYRENE SULFONATE [Concomitant]
     Active Substance: CALCIUM POLYSTYRENE SULFONATE
     Indication: Product used for unknown indication
     Dosage: UNK, TAKEN CONTINUOUSLY FOR QUITE SOME TIME
     Route: 065

REACTIONS (2)
  - Diverticulum intestinal haemorrhagic [Recovering/Resolving]
  - Off label use [Unknown]

NARRATIVE: CASE EVENT DATE: 20240727
